FAERS Safety Report 10953209 (Version 2)
Quarter: 2015Q2

REPORT INFORMATION
  Report Type: Spontaneous
  Country: DE (occurrence: DE)
  Receive Date: 20150325
  Receipt Date: 20150625
  Transmission Date: 20150821
  Serious: Yes (Congenital Anomaly, Other)
  Sender: FDA-Public Use
  Company Number: DE-ELI_LILLY_AND_COMPANY-DE201503005097

PATIENT
  Age: 0 Day
  Weight: 2.35 kg

DRUGS (2)
  1. CYMBALTA [Suspect]
     Active Substance: DULOXETINE HYDROCHLORIDE
     Indication: DEPRESSION
     Dosage: 60 MG, QD
     Route: 064
  2. TILIDIN [Suspect]
     Active Substance: NALOXONE HYDROCHLORIDE\TILIDINE HYDROCHLORIDE
     Indication: INTERVERTEBRAL DISC OPERATION
     Dosage: UNK, UNKNOWN
     Route: 064

REACTIONS (5)
  - Dysmorphism [Not Recovered/Not Resolved]
  - Low birth weight baby [Unknown]
  - Drug withdrawal syndrome neonatal [Not Recovered/Not Resolved]
  - Convulsion neonatal [Not Recovered/Not Resolved]
  - Foetal exposure during pregnancy [Unknown]

NARRATIVE: CASE EVENT DATE: 20150212
